FAERS Safety Report 9110116 (Version 1)
Quarter: 2013Q1

REPORT INFORMATION
  Report Type: Spontaneous
  Country: GT (occurrence: GT)
  Receive Date: 20130222
  Receipt Date: 20130222
  Transmission Date: 20140127
  Serious: Yes (Death, Other)
  Sender: FDA-Public Use
  Company Number: GT-JNJFOC-20130207468

PATIENT
  Age: 86 Year
  Sex: Male

DRUGS (6)
  1. XARELTO [Suspect]
     Indication: ATRIAL FIBRILLATION
     Dosage: CUMULATIVE DOSE 2.647MG
     Route: 048
     Dates: start: 20130208, end: 20130214
  2. XARELTO [Suspect]
     Indication: CEREBROVASCULAR ACCIDENT PROPHYLAXIS
     Dosage: CUMULATIVE DOSE 2.647MG
     Route: 048
     Dates: start: 20130208, end: 20130214
  3. INSULIN [Concomitant]
     Indication: DIABETES MELLITUS
     Route: 065
  4. CAPTOPRIL [Concomitant]
     Indication: HYPERTENSION
     Route: 065
  5. COREG [Concomitant]
     Indication: HYPERTENSION
     Route: 065
  6. UNKNOWN MEDICATION [Concomitant]
     Indication: PNEUMONIA
     Route: 065

REACTIONS (3)
  - Ischaemic stroke [Fatal]
  - Cerebrovascular accident [Unknown]
  - Drug ineffective [Unknown]
